FAERS Safety Report 6523953-4 (Version None)
Quarter: 2009Q4

REPORT INFORMATION
  Report Type: 
  Country: None (occurrence: None)
  Receive Date: 20091231
  Receipt Date: 20091222
  Transmission Date: 20100525
  Serious: Yes (Hospitalization)
  Sender: FDA-Public Use
  Company Number: JP-BRISTOL-MYERS SQUIBB COMPANY-14796296

PATIENT
  Age: 73 Year
  Sex: Male

DRUGS (4)
  1. IRBESARTAN [Suspect]
     Indication: ESSENTIAL HYPERTENSION
     Route: 048
     Dates: start: 20090723, end: 20090917
  2. AMLODIPINE [Suspect]
     Route: 048
  3. BLINDED: PLACEBO [Suspect]
     Indication: ESSENTIAL HYPERTENSION
     Route: 048
     Dates: start: 20090723, end: 20090918
  4. ADOFEED [Concomitant]
     Indication: BACK PAIN
     Dates: start: 20070707

REACTIONS (1)
  - POLYMYALGIA RHEUMATICA [None]
